FAERS Safety Report 7474262-0 (Version None)
Quarter: 2011Q2

REPORT INFORMATION
  Report Type: 
  Country: None (occurrence: None)
  Receive Date: 20110511
  Receipt Date: 20101126
  Transmission Date: 20111010
  Serious: Yes (Other)
  Sender: FDA-Public Use
  Company Number: DE-GENENTECH-310659

PATIENT
  Sex: Female

DRUGS (6)
  1. LUCENTIS [Suspect]
     Dosage: UNK
     Route: 031
  2. LUCENTIS [Suspect]
     Dosage: UNK
     Route: 031
     Dates: start: 20101013
  3. LUCENTIS [Suspect]
     Indication: AGE-RELATED MACULAR DEGENERATION
     Dosage: UNK
     Route: 031
     Dates: start: 20100303
  4. LUCENTIS [Suspect]
     Dosage: UNK
     Route: 031
     Dates: start: 20100825
  5. LUCENTIS [Suspect]
     Dosage: UNK
     Route: 031
  6. LUCENTIS [Suspect]
     Dosage: UNK
     Route: 031
     Dates: start: 20100428

REACTIONS (3)
  - RETINAL DETACHMENT [None]
  - INAPPROPRIATE SCHEDULE OF DRUG ADMINISTRATION [None]
  - MACULAR DEGENERATION [None]
